FAERS Safety Report 11236646 (Version 1)
Quarter: 2015Q3

REPORT INFORMATION
  Report Type: Spontaneous
  Country: AT (occurrence: AT)
  Receive Date: 20150703
  Receipt Date: 20150703
  Transmission Date: 20151125
  Serious: Yes (Death)
  Sender: FDA-Public Use
  Company Number: AT-ROCHE-1600561

PATIENT
  Age: 48 Year

DRUGS (3)
  1. CARBOPLATIN. [Suspect]
     Active Substance: CARBOPLATIN
     Indication: LUNG ADENOCARCINOMA
     Route: 065
     Dates: start: 201010, end: 201101
  2. ALIMTA [Suspect]
     Active Substance: PEMETREXED DISODIUM
     Indication: LUNG ADENOCARCINOMA
     Route: 065
     Dates: start: 201010, end: 201101
  3. AVASTIN [Suspect]
     Active Substance: BEVACIZUMAB
     Indication: LUNG ADENOCARCINOMA
     Route: 065
     Dates: start: 201010, end: 201410

REACTIONS (5)
  - Metastases to lymph nodes [Unknown]
  - Death [Fatal]
  - Pericardial effusion [Unknown]
  - Disease progression [Unknown]
  - Fibrosis [Unknown]

NARRATIVE: CASE EVENT DATE: 201406
